FAERS Safety Report 18463028 (Version 3)
Quarter: 2020Q4

REPORT INFORMATION
  Report Type: Spontaneous
  Country: DK (occurrence: DK)
  Receive Date: 20201104
  Receipt Date: 20201223
  Transmission Date: 20210114
  Serious: Yes (Other)
  Sender: FDA-Public Use
  Company Number: DK-PFIZER INC-2020427295

PATIENT
  Age: 56 Year
  Sex: Female

DRUGS (3)
  1. MORPHINE HYDROCHLORIDE [Suspect]
     Active Substance: MORPHINE HYDROCHLORIDE
     Indication: PAIN
  2. MORPHINE HYDROCHLORIDE [Suspect]
     Active Substance: MORPHINE HYDROCHLORIDE
     Indication: RIB FRACTURE
     Dosage: UNK
  3. BUPIVACAINE. [Concomitant]
     Active Substance: BUPIVACAINE
     Indication: PAIN
     Dosage: UNK (CONTINUOUS BUPIVACAINE INFUSION)

REACTIONS (2)
  - Extradural abscess [Recovered/Resolved]
  - Staphylococcal infection [Recovered/Resolved]
